FAERS Safety Report 5143120-9 (Version None)
Quarter: 2006Q4

REPORT INFORMATION
  Report Type: 
  Country: None (occurrence: None)
  Receive Date: 20061031
  Receipt Date: 20061031
  Transmission Date: 20070319
  Serious: Yes (Hospitalization)
  Sender: FDA-Public Use
  Company Number: None

PATIENT
  Sex: Male
  Weight: 139.7079 kg

DRUGS (1)
  1. NAPROXEN [Suspect]
     Indication: PAIN
     Dosage: 375MG  TWICE A DAY  PO
     Route: 048
     Dates: start: 20060619, end: 20060904

REACTIONS (1)
  - LOWER GASTROINTESTINAL HAEMORRHAGE [None]
